FAERS Safety Report 7895744-3 (Version None)
Quarter: 2011Q4

REPORT INFORMATION
  Report Type: 
  Country: None (occurrence: None)
  Receive Date: 20111106
  Receipt Date: 20110830
  Transmission Date: 20120403
  Serious: No
  Sender: FDA-Public Use
  Company Number: US-AMGEN-USASP2011044683

PATIENT
  Age: 51 Year
  Sex: Male

DRUGS (3)
  1. HUMIRA [Concomitant]
     Indication: PSORIASIS
  2. STELARA [Concomitant]
     Indication: PSORIASIS
  3. ENBREL [Suspect]
     Indication: PSORIASIS
     Dosage: UNK

REACTIONS (2)
  - THERAPEUTIC RESPONSE DECREASED [None]
  - ANTINUCLEAR ANTIBODY POSITIVE [None]
